FAERS Safety Report 4984046-0 (Version None)
Quarter: 2006Q1

REPORT INFORMATION
  Report Type: 
  Country: None (occurrence: None)
  Receive Date: 20060301
  Receipt Date: 20051031
  Transmission Date: 20060701
  Serious: No
  Sender: FDA-Public Use
  Company Number: S05-USA-04808-01

PATIENT
  Age: 72 Year
  Sex: Female

DRUGS (11)
  1. NAMENDA [Suspect]
     Indication: CONFUSIONAL STATE
     Dosage: 5 MG QD PO
     Route: 048
     Dates: start: 20051009, end: 20051015
  2. NAMENDA [Suspect]
     Indication: CONFUSIONAL STATE
     Dosage: 5 MG BID PO
     Route: 048
     Dates: start: 20051016, end: 20051022
  3. NAMENDA [Suspect]
     Indication: CONFUSIONAL STATE
     Dosage: 15 MG QD PO
     Route: 048
     Dates: start: 20051023, end: 20051029
  4. NAMENDA [Suspect]
     Indication: CONFUSIONAL STATE
     Dosage: 10 MG BID PO
     Route: 048
     Dates: start: 20051030
  5. LIPITOR [Concomitant]
  6. CANDURA (DOXAZOSIN) [Concomitant]
  7. LISINOPRIL [Concomitant]
  8. LASIX [Concomitant]
  9. SYNTHROID [Concomitant]
  10. ASPIRIN [Concomitant]
  11. ANTIHISTAMINE (NOS) [Concomitant]

REACTIONS (3)
  - CONFUSIONAL STATE [None]
  - FATIGUE [None]
  - FEELING COLD [None]
